FAERS Safety Report 5319916-7 (Version None)
Quarter: 2007Q2

REPORT INFORMATION
  Report Type: 
  Country: None (occurrence: None)
  Receive Date: 20070509
  Receipt Date: 20070430
  Transmission Date: 20071010
  Serious: Yes (Hospitalization)
  Sender: FDA-Public Use
  Company Number: US-JNJFOC-20060302561

PATIENT
  Sex: Female
  Weight: 93.44 kg

DRUGS (10)
  1. TYLENOL W/ CODEINE [Suspect]
     Indication: DRUG USE FOR UNKNOWN INDICATION
     Route: 048
  2. ALEVE [Suspect]
     Indication: HEADACHE
     Route: 048
  3. ALEVE [Suspect]
     Indication: BACK PAIN
     Route: 048
  4. ZESTRIL [Concomitant]
     Route: 048
  5. CARDIZEM [Concomitant]
     Route: 048
  6. MICRONASE [Concomitant]
     Route: 048
  7. TENORETIC 100 [Concomitant]
     Route: 048
  8. LIPITOR [Concomitant]
  9. MOBIC [Concomitant]
     Indication: PAIN
  10. GLUCOPHAGE [Concomitant]
     Indication: PAIN

REACTIONS (6)
  - ABDOMINAL PAIN UPPER [None]
  - GASTRIC PERFORATION [None]
  - PAIN [None]
  - PROCTALGIA [None]
  - RECTAL HAEMORRHAGE [None]
  - VAGINAL HAEMORRHAGE [None]
